FAERS Safety Report 17452339 (Version 2)
Quarter: 2020Q2

REPORT INFORMATION
  Report Type: Report from Study
  Country: PK (occurrence: PK)
  Receive Date: 20200224
  Receipt Date: 20200410
  Transmission Date: 20200713
  Serious: Yes (Death, Other)
  Sender: FDA-Public Use
  Company Number: NVSC2020PK050972

PATIENT
  Age: 56 Year
  Sex: Female

DRUGS (1)
  1. VOTRIENT [Suspect]
     Active Substance: PAZOPANIB HYDROCHLORIDE
     Indication: EWING^S SARCOMA
     Dosage: 400 MG, BID
     Route: 048
     Dates: start: 20191016, end: 20200203

REACTIONS (12)
  - Discomfort [Unknown]
  - Pain [Unknown]
  - Hepatic failure [Fatal]
  - Metastases to liver [Unknown]
  - Urine output decreased [Unknown]
  - Pulmonary oedema [Unknown]
  - Ascites [Unknown]
  - Eating disorder [Unknown]
  - Nausea [Unknown]
  - Decreased appetite [Unknown]
  - Renal failure [Unknown]
  - Metastasis [Unknown]

NARRATIVE: CASE EVENT DATE: 20200201
